FAERS Safety Report 5371350-X (Version None)
Quarter: 2007Q2

REPORT INFORMATION
  Report Type: 
  Country: None (occurrence: None)
  Receive Date: 20070622
  Receipt Date: 20070620
  Transmission Date: 20071010
  Serious: Yes (Hospitalization)
  Sender: FDA-Public Use
  Company Number: TCI2007A02090

PATIENT
  Age: 75 Year
  Sex: Male

DRUGS (7)
  1. LANSOPRAZOLE [Suspect]
     Indication: REFLUX OESOPHAGITIS
     Dosage: 15 MG (15 MG, 1 IN 1 D) PER ORAL
     Route: 048
     Dates: start: 20060409, end: 20070416
  2. ASPIRIN [Suspect]
     Indication: MYOCARDIAL INFARCTION
     Dosage: 100 MG (100 MG, 1 IN 1 D) PER ORAL
     Route: 048
     Dates: start: 20060409, end: 20070416
  3. BASEN (VOGLIBOSE) (TABLETS) [Concomitant]
  4. SIGMART (NICORANDIL) (TABLETS) [Concomitant]
  5. MUCOSTA (REBAMIPIDE) (PREPARATION FOR ORAL USE (NOS)) [Concomitant]
  6. MAINTATE (BISOPROLOL FUMARATE) (TABLETS) [Concomitant]
  7. MAGNESIUM OXIDE (PREPARATION FOR ORAL USE (NOS)) [Concomitant]

REACTIONS (26)
  - ACTIVATED PARTIAL THROMBOPLASTIN TIME PROLONGED [None]
  - BLOOD ALKALINE PHOSPHATASE INCREASED [None]
  - BLOOD CALCIUM DECREASED [None]
  - BLOOD CHLORIDE DECREASED [None]
  - BLOOD CREATINE PHOSPHOKINASE INCREASED [None]
  - BLOOD FIBRINOGEN INCREASED [None]
  - BLOOD IMMUNOGLOBULIN G INCREASED [None]
  - BLOOD LACTATE DEHYDROGENASE INCREASED [None]
  - BLOOD PH DECREASED [None]
  - BLOOD SODIUM DECREASED [None]
  - BODY TEMPERATURE DECREASED [None]
  - DRUG HYPERSENSITIVITY [None]
  - FEELING HOT [None]
  - FIBRIN DEGRADATION PRODUCTS INCREASED [None]
  - GAMMA-GLUTAMYLTRANSFERASE INCREASED [None]
  - HAEMATOCRIT DECREASED [None]
  - HAEMOGLOBIN DECREASED [None]
  - INFLAMMATION [None]
  - NASOPHARYNGITIS [None]
  - NEPHRITIS INTERSTITIAL [None]
  - OCCULT BLOOD POSITIVE [None]
  - PYREXIA [None]
  - RED BLOOD CELL COUNT DECREASED [None]
  - RENAL IMPAIRMENT [None]
  - RENAL TUBULAR DISORDER [None]
  - TREMOR [None]
